FAERS Safety Report 4916434-2 (Version None)
Quarter: 2006Q1

REPORT INFORMATION
  Report Type: 
  Country: None (occurrence: None)
  Receive Date: 20060214
  Receipt Date: 20060203
  Transmission Date: 20060701
  Serious: Yes (Life-Threatening, Other)
  Sender: FDA-Public Use
  Company Number: 200510017BCA

PATIENT
  Age: 72 Year
  Sex: Male

DRUGS (11)
  1. AVELOX [Suspect]
     Indication: CHRONIC OBSTRUCTIVE PULMONARY DISEASE
     Dosage: 400 MG, QD, INTRAVENOUS
     Route: 042
     Dates: start: 20050105, end: 20050108
  2. AVELOX [Suspect]
     Indication: PNEUMONIA
     Dosage: 400 MG, QD, INTRAVENOUS
     Route: 042
     Dates: start: 20050105, end: 20050108
  3. AVELOX [Suspect]
     Indication: CHRONIC OBSTRUCTIVE PULMONARY DISEASE
     Dosage: 400 MG, QD, INTRAVENOUS
     Route: 042
     Dates: start: 20050101
  4. AVELOX [Suspect]
     Indication: PNEUMONIA
     Dosage: 400 MG, QD, INTRAVENOUS
     Route: 042
     Dates: start: 20050101
  5. VECURONIUM BROMIDE [Concomitant]
  6. LASIX [Concomitant]
  7. VENTOLIN [Concomitant]
  8. ALTACE [Concomitant]
  9. PANTOPRAZOLE SODIUM [Concomitant]
  10. ATROVENT [Concomitant]
  11. CALCIUM GLUCONATE [Concomitant]

REACTIONS (4)
  - ASPARTATE AMINOTRANSFERASE INCREASED [None]
  - BLOOD CREATINE PHOSPHOKINASE INCREASED [None]
  - ELECTROCARDIOGRAM QT PROLONGED [None]
  - HYPOCALCAEMIA [None]
